FAERS Safety Report 15119437 (Version 1)
Quarter: 2018Q3

REPORT INFORMATION
  Report Type: Report from Study
  Country: JP (occurrence: JP)
  Receive Date: 20180709
  Receipt Date: 20180709
  Transmission Date: 20181010
  Serious: Yes (Hospitalization)
  Sender: FDA-Public Use
  Company Number: JP-ACCORD-069289

PATIENT
  Age: 84 Year
  Sex: Male
  Weight: 56.6 kg

DRUGS (7)
  1. MEMANTINE. [Concomitant]
     Active Substance: MEMANTINE
  2. FUROSEMIDE. [Concomitant]
     Active Substance: FUROSEMIDE
  3. ISOSORBIDE/ISOSORBIDE DINITRATE/ISOSORBIDE MONONITRATE [Concomitant]
  4. DONEPEZIL/DONEPEZIL HYDROCHLORIDE [Suspect]
     Active Substance: DONEPEZIL HYDROCHLORIDE
     Indication: DEMENTIA ALZHEIMER^S TYPE
     Dates: start: 2012
  5. DILTIAZEM. [Concomitant]
     Active Substance: DILTIAZEM
  6. WARFARIN [Concomitant]
     Active Substance: WARFARIN
  7. NICORANDIL [Concomitant]
     Active Substance: NICORANDIL

REACTIONS (2)
  - Decreased appetite [Recovering/Resolving]
  - Hypophagia [Recovering/Resolving]
